FAERS Safety Report 20108743 (Version 1)
Quarter: 2021Q4

REPORT INFORMATION
  Report Type: Spontaneous
  Country: MA (occurrence: MA)
  Receive Date: 20211124
  Receipt Date: 20211124
  Transmission Date: 20220303
  Serious: Yes (Other)
  Sender: FDA-Public Use
  Company Number: MA-GLAXOSMITHKLINE-MA2020EME057843

PATIENT

DRUGS (2)
  1. ALBUTEROL [Suspect]
     Active Substance: ALBUTEROL
     Indication: Asthma
     Dosage: 100, QD, (2 TO 4 PUFFS PER DAY)
     Dates: start: 1999
  2. SAFLU [Concomitant]
     Indication: Product used for unknown indication
     Dosage: UNK, 250 INFREQUENT
     Route: 048
     Dates: start: 2018

REACTIONS (6)
  - Angina pectoris [Unknown]
  - Tricuspid valve incompetence [Unknown]
  - Mitral valve incompetence [Unknown]
  - Left ventricular hypertrophy [Unknown]
  - Palpitations [Unknown]
  - Heart rate increased [Unknown]
